FAERS Safety Report 20298144 (Version 1)
Quarter: 2022Q1

REPORT INFORMATION
  Report Type: Spontaneous
  Country: FR (occurrence: FR)
  Receive Date: 20220105
  Receipt Date: 20220105
  Transmission Date: 20220423
  Serious: Yes (Congenital Anomaly, Other)
  Sender: FDA-Public Use
  Company Number: FR-ABBVIE-22K-056-4220325-00

PATIENT
  Sex: Male

DRUGS (2)
  1. VALPROATE SODIUM [Suspect]
     Active Substance: VALPROATE SODIUM
     Indication: Maternal exposure timing unspecified
     Route: 064
  2. FOLIC ACID [Concomitant]
     Active Substance: FOLIC ACID
     Indication: Maternal exposure timing unspecified

REACTIONS (25)
  - Cranial nerve disorder [Recovered/Resolved]
  - Atrial septal defect [Recovered/Resolved]
  - Behaviour disorder [Unknown]
  - Eating disorder [Unknown]
  - Sleep disorder [Unknown]
  - Psychomotor skills impaired [Not Recovered/Not Resolved]
  - Suicide attempt [Not Recovered/Not Resolved]
  - Clavicle fracture [Not Recovered/Not Resolved]
  - Communication disorder [Unknown]
  - Emotional disorder [Unknown]
  - Dysmorphism [Recovered/Resolved]
  - Visual impairment [Recovered/Resolved]
  - Disturbance in attention [Unknown]
  - Neurodevelopmental disorder [Not Recovered/Not Resolved]
  - Autism spectrum disorder [Unknown]
  - Personality disorder [Not Recovered/Not Resolved]
  - Limb malformation [Unknown]
  - Learning disorder [Unknown]
  - Enuresis [Unknown]
  - Depression [Unknown]
  - Hypothermia [Not Recovered/Not Resolved]
  - Anxiety [Not Recovered/Not Resolved]
  - Deafness [Not Recovered/Not Resolved]
  - Unevaluable event [Unknown]
  - Foetal exposure during pregnancy [Unknown]

NARRATIVE: CASE EVENT DATE: 20110101
